FAERS Safety Report 9508856 (Version 2)
Quarter: 2013Q3

REPORT INFORMATION
  Report Type: Spontaneous
  Country: US (occurrence: US)
  Receive Date: 20130909
  Receipt Date: 20130909
  Transmission Date: 20140515
  Serious: No
  Sender: FDA-Public Use
  Company Number: US-BRISTOL-MYERS SQUIBB COMPANY-17399270

PATIENT
  Age: 53 Year
  Sex: Female
  Weight: 54.87 kg

DRUGS (3)
  1. ABILIFY TABS 15 MG [Suspect]
     Indication: BIPOLAR II DISORDER
     Dosage: LAST DOSE  11JUL2012
     Dates: start: 201110, end: 20120711
  2. ABILIFY TABS 15 MG [Suspect]
     Indication: DEPRESSION
     Dosage: LAST DOSE  11JUL2012
     Dates: start: 201110, end: 20120711
  3. PAXIL [Concomitant]

REACTIONS (1)
  - Weight increased [Unknown]
